FAERS Safety Report 16397697 (Version 1)
Quarter: 2019Q2

REPORT INFORMATION
  Report Type: Spontaneous
  Country: US (occurrence: US)
  Receive Date: 20190606
  Receipt Date: 20190606
  Transmission Date: 20190711
  Serious: No
  Sender: FDA-Public Use
  Company Number: US-ASTRAZENECA-2019SE72395

PATIENT
  Age: 29115 Day
  Sex: Female
  Weight: 64.4 kg

DRUGS (2)
  1. SEROTONIN [Concomitant]
     Active Substance: SEROTONIN
     Indication: DEPRESSION
     Dosage: DAILY
     Route: 048
  2. SYMBICORT [Suspect]
     Active Substance: BUDESONIDE\FORMOTEROL FUMARATE DIHYDRATE
     Indication: ASTHMA
     Dosage: 160/4.5MCG, TWO PUFFS TWO TIMES A DAY
     Route: 055
     Dates: start: 2017

REACTIONS (4)
  - Product dose omission [Unknown]
  - Wrong technique in product usage process [Recovered/Resolved]
  - Sputum discoloured [Unknown]
  - Dysphonia [Unknown]
